FAERS Safety Report 16565111 (Version 1)
Quarter: 2019Q3

REPORT INFORMATION
  Report Type: Report from Study
  Country: NL (occurrence: NL)
  Receive Date: 20190712
  Receipt Date: 20190712
  Transmission Date: 20191004
  Serious: Yes (Other)
  Sender: FDA-Public Use
  Company Number: NL-AMGEN-NLDSL2019076899

PATIENT
  Age: 74 Year
  Sex: Male

DRUGS (8)
  1. ASCAL BRISPER CARDIO-NEURO [Concomitant]
     Active Substance: ASPIRIN\CARBASPIRIN CALCIUM
     Dosage: 100 MILLIGRAM, QD
  2. ATORVASTATINE [Concomitant]
     Active Substance: ATORVASTATIN
     Dosage: 20 MILLIGRAM, QD
  3. CARBASALAATCALCIUM [Concomitant]
     Active Substance: CARBASPIRIN CALCIUM
     Dosage: 100 MILLIGRAM, QD
  4. XGEVA [Suspect]
     Active Substance: DENOSUMAB
     Indication: PROPHYLAXIS
     Dosage: 120 MILLIGRAM PER MILLILITRE, 1.7ML,Q4WK
     Route: 065
     Dates: start: 20190318
  5. ZOLADEX [Concomitant]
     Active Substance: GOSERELIN ACETATE
     Dosage: (1 X 12 WEEKS)
  6. CALCIUM CARBONATE W/COLECALCIFEROL [Concomitant]
     Active Substance: CALCIUM CARBONATE\CHOLECALCIFEROL
     Dosage: UNK,1.25G/880IE (500MG CA),
  7. GOSERELINE [Concomitant]
     Active Substance: GOSERELIN
     Dosage: 10.8 MILLIGRAM,1X3M1INJ
  8. XGEVA [Suspect]
     Active Substance: DENOSUMAB
     Dosage: UNK
     Route: 065

REACTIONS (7)
  - Rectal haemorrhage [Unknown]
  - Muscle spasms [Unknown]
  - Fatigue [Unknown]
  - Lip injury [Not Recovered/Not Resolved]
  - Pain in extremity [Unknown]
  - Impaired healing [Not Recovered/Not Resolved]
  - Gingival pain [Unknown]

NARRATIVE: CASE EVENT DATE: 201906
